FAERS Safety Report 21587626 (Version 1)
Quarter: 2022Q4

REPORT INFORMATION
  Report Type: Other
  Country: None (occurrence: CN)
  Receive Date: 20221114
  Receipt Date: 20221114
  Transmission Date: 20230112
  Serious: Yes (Hospitalization)
  Sender: FDA-Public Use
  Company Number: CN-Jiangsu Hengrui Medicine Co., Ltd.-2134819

PATIENT
  Age: 59 Year
  Sex: Male
  Weight: 48 kg

DRUGS (2)
  1. IRINOTECAN HYDROCHLORIDE [Suspect]
     Active Substance: IRINOTECAN HYDROCHLORIDE
     Indication: Renal cancer
     Route: 041
     Dates: start: 20220727, end: 20220727
  2. CATEQUENTINIB [Suspect]
     Active Substance: CATEQUENTINIB
     Route: 048
     Dates: start: 20220727, end: 20220808

REACTIONS (3)
  - Myelosuppression [Recovered/Resolved with Sequelae]
  - Platelet count decreased [Recovering/Resolving]
  - Hypoalbuminaemia [Not Recovered/Not Resolved]

NARRATIVE: CASE EVENT DATE: 20220804
